FAERS Safety Report 12273454 (Version 1)
Quarter: 2016Q2

REPORT INFORMATION
  Report Type: Spontaneous
  Country: JP (occurrence: JP)
  Receive Date: 20160415
  Receipt Date: 20160415
  Transmission Date: 20160815
  Serious: Yes (Other)
  Sender: FDA-Public Use
  Company Number: JP-BAYER-2016-067632

PATIENT
  Age: 73 Year
  Sex: Male

DRUGS (3)
  1. PRASUGREL [Suspect]
     Active Substance: PRASUGREL
     Route: 048
  2. ACETYLSALICYLIC ACID({=100 MG) [Suspect]
     Active Substance: ASPIRIN
     Indication: ASTHMA
     Route: 048
  3. PREDNISOLONE. [Suspect]
     Active Substance: PREDNISOLONE
     Indication: ASTHMA

REACTIONS (9)
  - Chronic obstructive pulmonary disease [None]
  - Shock haemorrhagic [None]
  - Asthma [None]
  - Diverticulum intestinal haemorrhagic [None]
  - Labelled drug-drug interaction medication error [None]
  - Pneumonia [None]
  - Gastric ulcer haemorrhage [None]
  - Gastric haemorrhage [None]
  - Cerebellar infarction [None]
